FAERS Safety Report 4983940-4 (Version None)
Quarter: 2006Q2

REPORT INFORMATION
  Report Type: 
  Country: None (occurrence: None)
  Receive Date: 20060426
  Receipt Date: 20050912
  Transmission Date: 20061013
  Serious: Yes (Hospitalization, Disabling, Other)
  Sender: FDA-Public Use
  Company Number: US-MERCK-0509USA01657

PATIENT
  Age: 54 Year
  Sex: Male
  Weight: 84 kg

DRUGS (12)
  1. VIOXX [Suspect]
     Indication: PAIN
     Route: 048
     Dates: start: 19990101, end: 20040901
  2. VIOXX [Suspect]
     Route: 048
     Dates: start: 19990101, end: 20040901
  3. METOPROLOL [Concomitant]
     Indication: HYPERTENSION
     Route: 065
     Dates: start: 19980101
  4. GLUCOVANCE [Concomitant]
     Indication: DIABETES MELLITUS
     Route: 065
  5. GLYBURIDE [Concomitant]
     Indication: DIABETES MELLITUS
     Route: 065
  6. GLUCOPHAGE [Concomitant]
     Indication: DIABETES MELLITUS
     Route: 065
  7. CEPHALEXIN [Concomitant]
     Indication: INFECTION
     Route: 065
  8. DIPYRIDAMOLE [Concomitant]
     Indication: ARTERIAL BYPASS OPERATION
     Route: 065
  9. ULTRAM [Concomitant]
     Indication: PAIN
     Route: 065
     Dates: start: 19981101, end: 20000601
  10. TRIMOX [Concomitant]
     Indication: INFECTION
     Route: 065
  11. POTASSIUM (UNSPECIFIED) [Concomitant]
     Route: 065
  12. ACCUPRIL [Concomitant]
     Route: 065
     Dates: start: 19990101

REACTIONS (14)
  - ANGINA UNSTABLE [None]
  - ATRIOVENTRICULAR BLOCK [None]
  - BACTERIAL INFECTION [None]
  - BLOOD PRESSURE INCREASED [None]
  - CEREBROVASCULAR ACCIDENT [None]
  - CHEST PAIN [None]
  - CORONARY ARTERY DISEASE [None]
  - ILIAC ARTERY OCCLUSION [None]
  - ILIAC ARTERY STENOSIS [None]
  - MYOCARDIAL INFARCTION [None]
  - PAIN IN EXTREMITY [None]
  - PERIPHERAL VASCULAR DISORDER [None]
  - PLATELET AGGREGATION INCREASED [None]
  - THROMBOSIS [None]
